FAERS Safety Report 19185202 (Version 2)
Quarter: 2021Q2

REPORT INFORMATION
  Report Type: Spontaneous
  Country: CN (occurrence: CN)
  Receive Date: 20210427
  Receipt Date: 20210428
  Transmission Date: 20210717
  Serious: Yes (Life-Threatening, Other)
  Sender: FDA-Public Use
  Company Number: CN-PURDUE-USA-2021-0250828

PATIENT
  Age: 58 Year
  Sex: Male

DRUGS (2)
  1. MORPHINE SULFATE. [Suspect]
     Active Substance: MORPHINE SULFATE
     Indication: PAIN
     Dosage: 0.011 G, (TOTAL, 3 TIMES IN UNEVEN FRACTIONS)
     Route: 051
  2. OXYCONTIN [Suspect]
     Active Substance: OXYCODONE HYDROCHLORIDE
     Indication: PAIN
     Dosage: 10 MG, DAILY
     Route: 048
     Dates: start: 20210412, end: 20210412

REACTIONS (4)
  - Miosis [Recovered/Resolved]
  - Somnolence [Recovered/Resolved]
  - Chills [Unknown]
  - Body temperature increased [Unknown]

NARRATIVE: CASE EVENT DATE: 20210412
